FAERS Safety Report 4629917-X (Version None)
Quarter: 2005Q2

REPORT INFORMATION
  Report Type: 
  Country: None (occurrence: None)
  Receive Date: 20050408
  Receipt Date: 20050404
  Transmission Date: 20051028
  Serious: Yes (Death)
  Sender: FDA-Public Use
  Company Number: PHBS2005YU04715

PATIENT
  Age: 67 Year
  Sex: Male

DRUGS (1)
  1. LEPONEX [Suspect]
     Indication: SCHIZOPHRENIA, PARANOID TYPE
     Dosage: 100 MG, TID
     Route: 048
     Dates: start: 20020101

REACTIONS (3)
  - COUGH [None]
  - INCREASED BRONCHIAL SECRETION [None]
  - RHONCHI [None]
